FAERS Safety Report 6122807-5 (Version None)
Quarter: 2009Q1

REPORT INFORMATION
  Report Type: 
  Country: None (occurrence: None)
  Receive Date: 20090318
  Receipt Date: 20080819
  Transmission Date: 20090719
  Serious: No
  Sender: FDA-Public Use
  Company Number: US-AMGEN-US302374

PATIENT
  Sex: Female

DRUGS (3)
  1. NEUPOGEN [Suspect]
     Indication: CHEMOTHERAPY
     Route: 065
     Dates: start: 20070801
  2. NEULASTA [Suspect]
     Indication: CHEMOTHERAPY
     Route: 065
  3. ALIMTA [Concomitant]
     Route: 065

REACTIONS (4)
  - BACK PAIN [None]
  - MUSCLE SPASMS [None]
  - PYREXIA [None]
  - RED BLOOD CELL COUNT DECREASED [None]
